FAERS Safety Report 18978777 (Version 5)
Quarter: 2021Q4

REPORT INFORMATION
  Report Type: Report from Study
  Country: US (occurrence: US)
  Receive Date: 20210308
  Receipt Date: 20211117
  Transmission Date: 20220303
  Serious: Yes (Hospitalization, Congenital Anomaly)
  Sender: FDA-Public Use
  Company Number: US-ABBVIE-21K-163-3797360-00

PATIENT
  Sex: Female

DRUGS (4)
  1. HUMIRA [Suspect]
     Active Substance: ADALIMUMAB
     Indication: Rheumatoid arthritis
     Dosage: CITRATE FREE
     Route: 058
     Dates: end: 2020
  2. HUMIRA [Suspect]
     Active Substance: ADALIMUMAB
     Dosage: CF
     Route: 058
     Dates: start: 20210703
  3. PFIZER-BIONTECH COVID-19 VACCINE [Concomitant]
     Active Substance: TOZINAMERAN
     Indication: COVID-19 immunisation
     Dosage: PFIZER 1ST DOSE
     Route: 030
     Dates: start: 20210403, end: 20210403
  4. PFIZER-BIONTECH COVID-19 VACCINE [Concomitant]
     Active Substance: TOZINAMERAN
     Dosage: PFIZER 2ND DOSE
     Route: 030
     Dates: start: 20210430, end: 20210430

REACTIONS (14)
  - Cardiac septal defect [Unknown]
  - Cerebrovascular accident [Unknown]
  - Inappropriate schedule of product administration [Unknown]
  - Gait disturbance [Unknown]
  - Illness [Unknown]
  - Fatigue [Unknown]
  - Joint swelling [Recovering/Resolving]
  - Inflammation [Unknown]
  - Arthritis [Unknown]
  - Peripheral swelling [Unknown]
  - Dyspnoea [Unknown]
  - Pain in extremity [Unknown]
  - Pain [Unknown]
  - Grip strength decreased [Unknown]

NARRATIVE: CASE EVENT DATE: 20200101
